FAERS Safety Report 15494092 (Version 1)
Quarter: 2018Q4

REPORT INFORMATION
  Report Type: Spontaneous
  Country: US (occurrence: US)
  Receive Date: 20181005
  Receipt Date: 20181005
  Transmission Date: 20190205
  Serious: Yes (Other)
  Sender: FDA-Public Use
  Company Number: None

PATIENT
  Sex: Female

DRUGS (14)
  1. PULMICORT TURBUHALER [Concomitant]
     Active Substance: BUDESONIDE
  2. ALBUTEROL. [Concomitant]
     Active Substance: ALBUTEROL
  3. CETIRIZINE [Concomitant]
     Active Substance: CETIRIZINE HYDROCHLORIDE
  4. TOBRAMYCIN. [Concomitant]
     Active Substance: TOBRAMYCIN
  5. PULMOZYME [Concomitant]
     Active Substance: DORNASE ALFA
  6. FOLIC ACID. [Concomitant]
     Active Substance: FOLIC ACID
  7. VIGABATRIN. [Suspect]
     Active Substance: VIGABATRIN
     Indication: EPILEPSY
     Route: 048
     Dates: start: 20170922
  8. VITAMIN D [Concomitant]
     Active Substance: CHOLECALCIFEROL
  9. AFRIN [Concomitant]
     Active Substance: OXYMETAZOLINE
  10. CLONAZEPAM. [Concomitant]
     Active Substance: CLONAZEPAM
  11. BANZEL [Concomitant]
     Active Substance: RUFINAMIDE
  12. MONTELUKAST [Concomitant]
     Active Substance: MONTELUKAST SODIUM
  13. ONFI [Concomitant]
     Active Substance: CLOBAZAM
  14. SABRIL [Concomitant]
     Active Substance: VIGABATRIN

REACTIONS (2)
  - Seizure [None]
  - Product dose omission [None]
